FAERS Safety Report 7769580-2 (Version None)
Quarter: 2011Q3

REPORT INFORMATION
  Report Type: 
  Country: None (occurrence: None)
  Receive Date: 20110922
  Receipt Date: 20100915
  Transmission Date: 20111222
  Serious: No
  Sender: FDA-Public Use
  Company Number: US-ASTRAZENECA-2007UW06095

PATIENT
  Age: 15574 Day
  Sex: Male
  Weight: 136.1 kg

DRUGS (29)
  1. SEROQUEL [Suspect]
     Indication: ANXIETY
     Route: 048
     Dates: start: 20030607, end: 20060302
  2. SEROQUEL [Suspect]
     Route: 048
     Dates: start: 20060302
  3. CARISOPRODOL [Concomitant]
  4. PLAVIX [Concomitant]
  5. SEROQUEL [Suspect]
     Dosage: 25-100 MG
     Route: 048
     Dates: start: 20040707
  6. SEROQUEL [Suspect]
     Dosage: 25-100 MG
     Route: 048
     Dates: start: 20040707
  7. ACCUPRIL [Concomitant]
  8. LIPITOR [Concomitant]
     Indication: BLOOD CHOLESTEROL INCREASED
  9. LASIX [Concomitant]
  10. SULAR [Concomitant]
  11. HYDROCODONE BITARTRATE AND ACETAMINOPHEN [Concomitant]
  12. LORTAB [Concomitant]
  13. AMOXICILLIN [Concomitant]
  14. SEROQUEL [Suspect]
     Dosage: 25-100 MG
     Route: 048
     Dates: start: 20040707
  15. SEROQUEL [Suspect]
     Route: 048
     Dates: start: 20060302
  16. SEROQUEL [Suspect]
     Route: 048
     Dates: start: 20030101
  17. SEROQUEL [Suspect]
     Indication: DEPRESSION
     Route: 048
     Dates: start: 20030607, end: 20060302
  18. SEROQUEL [Suspect]
     Route: 048
     Dates: start: 20060302
  19. SEROQUEL [Suspect]
     Route: 048
     Dates: start: 20030101
  20. LIPITOR [Concomitant]
     Indication: HYPERLIPIDAEMIA
  21. XANAX [Concomitant]
     Indication: ANXIETY DISORDER
  22. AMBIEN [Concomitant]
  23. TRAZELORT [Concomitant]
  24. LEXAPRO [Concomitant]
     Indication: DEPRESSION
  25. TRICOR [Concomitant]
     Indication: BLOOD CHOLESTEROL INCREASED
  26. METFORMIN HYDROCHLORIDE [Concomitant]
  27. SEROQUEL [Suspect]
     Indication: SLEEP DISORDER
     Route: 048
     Dates: start: 20030607, end: 20060302
  28. SEROQUEL [Suspect]
     Route: 048
     Dates: start: 20030101
  29. TRICOR [Concomitant]
     Indication: HYPERLIPIDAEMIA

REACTIONS (5)
  - DIABETES MELLITUS [None]
  - TYPE 2 DIABETES MELLITUS [None]
  - HYPERINSULINAEMIA [None]
  - SINUS DISORDER [None]
  - TOOTH INFECTION [None]
